FAERS Safety Report 9405515 (Version 1)
Quarter: 2013Q3

REPORT INFORMATION
  Report Type: Spontaneous
  Country: GB (occurrence: GB)
  Receive Date: 20130715
  Receipt Date: 20130715
  Transmission Date: 20140515
  Serious: Yes (Other)
  Sender: FDA-Public Use
  Company Number: 2013GMK006116

PATIENT
  Age: 43 Year
  Sex: Male

DRUGS (3)
  1. MONTELUKAST [Suspect]
     Indication: PRODUCT USED FOR UNKNOWN INDICATION
  2. SALMETEROL XINAFOATE/FLUTICASONE PROPIONATE [Suspect]
     Route: 055
  3. VENTOLIN (SALBUTAMOL) [Suspect]
     Route: 055

REACTIONS (6)
  - Pigment dispersion syndrome [None]
  - Blebitis [None]
  - Diplopia [None]
  - Dysaesthesia [None]
  - Tenon^s cyst [None]
  - Pigmentary glaucoma [None]
